FAERS Safety Report 7432313-3 (Version None)
Quarter: 2011Q2

REPORT INFORMATION
  Report Type: 
  Country: None (occurrence: None)
  Receive Date: 20110422
  Receipt Date: 20110419
  Transmission Date: 20111010
  Serious: Yes (Hospitalization)
  Sender: FDA-Public Use
  Company Number: US-PFIZER INC-2011085820

PATIENT
  Sex: Female
  Weight: 61.224 kg

DRUGS (6)
  1. METOPROLOL [Concomitant]
     Indication: BLOOD PRESSURE ABNORMAL
     Dosage: 25 MG, UNK
  2. TIKOSYN [Suspect]
     Indication: CARDIAC DISORDER
     Dosage: 125 MG, 2X/DAY
     Dates: start: 20090101
  3. TIKOSYN [Suspect]
     Indication: ATRIAL FIBRILLATION
  4. XALATAN [Suspect]
  5. LASIX [Concomitant]
     Indication: DIURETIC THERAPY
     Dosage: 40 MG, 1X/DAY
  6. LASIX [Concomitant]
     Indication: BLOOD PRESSURE ABNORMAL

REACTIONS (3)
  - PANCREATITIS [None]
  - ASTHENIA [None]
  - FATIGUE [None]
